FAERS Safety Report 6053190-1 (Version None)
Quarter: 2009Q1

REPORT INFORMATION
  Report Type: 
  Country: None (occurrence: None)
  Receive Date: 20090123
  Receipt Date: 20090114
  Transmission Date: 20090719
  Serious: Yes (Other)
  Sender: FDA-Public Use
  Company Number: 2009SP001019

PATIENT
  Age: 56 Year
  Sex: Female

DRUGS (3)
  1. LORATADINE [Suspect]
     Indication: PRURITUS
  2. RANITIDINE [Suspect]
     Indication: PRURITUS
  3. ERYTHROMYCIN ETHYLSUCCINATE [Suspect]
     Indication: INFECTED BITES
     Dosage: 500 MG;QID;PO
     Route: 048
     Dates: start: 20080729, end: 20080731

REACTIONS (6)
  - BURNING SENSATION [None]
  - CHOLESTASIS [None]
  - DYSGEUSIA [None]
  - FEELING ABNORMAL [None]
  - FOOD AVERSION [None]
  - TONGUE DISCOLOURATION [None]
